FAERS Safety Report 7285310-5 (Version None)
Quarter: 2011Q1

REPORT INFORMATION
  Report Type: 
  Country: None (occurrence: None)
  Receive Date: 20110121
  Receipt Date: 20100204
  Transmission Date: 20110831
  Serious: No
  Sender: FDA-Public Use
  Company Number: AE 2010-018

PATIENT
  Sex: Female

DRUGS (11)
  1. COGENTIN [Concomitant]
  2. CLARITIN [Concomitant]
  3. DEPAKOTE [Concomitant]
  4. ASPIRIN [Concomitant]
  5. HYDROCHLOROTHIAZIDE [Concomitant]
  6. ZYPREXA [Concomitant]
  7. VITAMIN D [Concomitant]
  8. HALDOL [Concomitant]
  9. NORVASC [Concomitant]
  10. FAZACLO ODT [Suspect]
     Indication: SCHIZOPHRENIA
     Dosage: 50MG - 75MG DAILY PO
     Route: 048
     Dates: start: 20080801
  11. FOLIC ACID [Concomitant]

REACTIONS (3)
  - DYSARTHRIA [None]
  - DIZZINESS [None]
  - AMNESIA [None]
